FAERS Safety Report 25807192 (Version 1)
Quarter: 2025Q3

REPORT INFORMATION
  Report Type: Spontaneous
  Country: US (occurrence: None)
  Receive Date: 20250915
  Receipt Date: 20250915
  Transmission Date: 20251021
  Serious: No
  Sender: FDA-CTU
  Company Number: None

PATIENT
  Sex: Female

DRUGS (6)
  1. HUMIRA [Suspect]
     Active Substance: ADALIMUMAB
     Indication: Crohn^s disease
     Route: 058
     Dates: start: 20230209
  2. CITALOPRAM TAB 20MG [Concomitant]
  3. HUMIRA KIT 40MG/0.8 [Concomitant]
  4. LEVOTHYROXIN TAB 50MCG [Concomitant]
  5. LISINOPRIL [Concomitant]
     Active Substance: LISINOPRIL
  6. PROPRANOLOL TAB 10MG [Concomitant]

REACTIONS (3)
  - Memory impairment [None]
  - Product dose omission issue [None]
  - Therapy non-responder [None]
